FAERS Safety Report 14936564 (Version 1)
Quarter: 2018Q2

REPORT INFORMATION
  Report Type: Spontaneous
  Country: US (occurrence: US)
  Receive Date: 20180525
  Receipt Date: 20180525
  Transmission Date: 20180711
  Serious: No
  Sender: FDA-Public Use
  Company Number: US-TEVA-783741ACC

PATIENT
  Sex: Female

DRUGS (1)
  1. CLONIDINE. [Suspect]
     Active Substance: CLONIDINE
     Indication: BLOOD PRESSURE MEASUREMENT
     Route: 062
     Dates: start: 20170621

REACTIONS (3)
  - Application site erythema [Unknown]
  - Application site burn [Unknown]
  - Application site pruritus [Unknown]

NARRATIVE: CASE EVENT DATE: 20170628
